FAERS Safety Report 8182845-8 (Version None)
Quarter: 2012Q1

REPORT INFORMATION
  Report Type: 
  Country: None (occurrence: None)
  Receive Date: 20120126
  Receipt Date: 20111006
  Transmission Date: 20120608
  Serious: Yes (Hospitalization)
  Sender: FDA-Public Use
  Company Number: PHEH2011US06352

PATIENT
  Sex: Male

DRUGS (6)
  1. VALCYTE [Concomitant]
  2. AFINITOR [Suspect]
     Indication: HEPATIC NEOPLASM MALIGNANT
     Dosage: ORAL
     Route: 048
  3. BACTRIM [Concomitant]
  4. NYSTATIN [Concomitant]
  5. STEROIDS NOS [Concomitant]
  6. PROGRAF [Concomitant]

REACTIONS (2)
  - RASH [None]
  - FUNGAL SKIN INFECTION [None]
